FAERS Safety Report 13763047 (Version 2)
Quarter: 2017Q3

REPORT INFORMATION
  Report Type: Spontaneous
  Country: CZ (occurrence: CZ)
  Receive Date: 20170718
  Receipt Date: 20170724
  Transmission Date: 20171127
  Serious: Yes (Other)
  Sender: FDA-Public Use
  Company Number: CZ-ROCHE-1964904

PATIENT
  Age: 87 Year
  Sex: Male

DRUGS (6)
  1. VEROSPIRON [Concomitant]
     Active Substance: SPIRONOLACTONE
  2. HELICID [Concomitant]
  3. DIGOXIN. [Concomitant]
     Active Substance: DIGOXIN
  4. ACTILYSE [Suspect]
     Active Substance: ALTEPLASE
     Indication: CEREBROVASCULAR ACCIDENT
     Route: 042
     Dates: start: 20170707, end: 20170707
  5. CORYOL (CARVEDILOL) [Concomitant]
  6. FURON [Concomitant]
     Active Substance: FUROSEMIDE

REACTIONS (1)
  - Generalised erythema [Recovered/Resolved]

NARRATIVE: CASE EVENT DATE: 20170707
